FAERS Safety Report 23218426 (Version 2)
Quarter: 2024Q1

REPORT INFORMATION
  Report Type: Report from Study
  Country: US (occurrence: US)
  Receive Date: 20231122
  Receipt Date: 20240311
  Transmission Date: 20240410
  Serious: Yes (Other)
  Sender: FDA-Public Use
  Company Number: US-HORIZON THERAPEUTICS-HZN-2023-009241

PATIENT

DRUGS (14)
  1. KRYSTEXXA [Suspect]
     Active Substance: PEGLOTICASE
     Indication: Gouty tophus
     Dosage: FIRST INFUSION - 8 MG, EVERY 2 WEEKS
     Route: 042
     Dates: start: 20230331
  2. KRYSTEXXA [Suspect]
     Active Substance: PEGLOTICASE
     Dosage: UNKNOWN INFUSION - 8 MG, EVERY 2 WEEKS
     Route: 042
     Dates: start: 20230804, end: 20230804
  3. KRYSTEXXA [Suspect]
     Active Substance: PEGLOTICASE
     Dosage: UNKNOWN INFUSION - 8 MG, EVERY 2 WEEKS
     Route: 042
     Dates: start: 20231025
  4. KRYSTEXXA [Suspect]
     Active Substance: PEGLOTICASE
     Dosage: LAST INFUSION - 8 MG, EVERY 2 WEEKS
     Route: 042
     Dates: start: 20231103, end: 20231103
  5. METHOTREXATE [Suspect]
     Active Substance: METHOTREXATE
     Dosage: 2.5 MG (3 TABLETS), WEEKLY
     Route: 048
     Dates: start: 20230130
  6. FLEXERIL [Concomitant]
     Active Substance: CYCLOBENZAPRINE HYDROCHLORIDE
     Dosage: 10 MG, TID
     Route: 065
     Dates: start: 20210716
  7. FOLIC ACID [Concomitant]
     Active Substance: FOLIC ACID
     Dosage: 1 MG, QD
     Route: 048
     Dates: start: 20230130
  8. PREDNISONE [Concomitant]
     Active Substance: PREDNISONE
     Dosage: 5 MG, QD
     Route: 048
     Dates: start: 20230124
  9. ALLOPURINOL [Concomitant]
     Active Substance: ALLOPURINOL
     Dosage: 100 MG, QD
     Route: 048
     Dates: start: 20220711
  10. ATENOLOL [Concomitant]
     Active Substance: ATENOLOL
     Dosage: 50 MG, BID
     Route: 048
     Dates: start: 20221102
  11. COLCHICINE [Concomitant]
     Active Substance: COLCHICINE
     Dosage: 0.6 MG (1/2 TAB), QD
     Route: 065
     Dates: start: 20230130
  12. FENOFIBRATE [Concomitant]
     Active Substance: FENOFIBRATE
     Dosage: 67 MG, AS DIRECTED IN THE EVENING, QD
     Route: 048
     Dates: start: 20230113
  13. FERROUS SULFATE [Concomitant]
     Active Substance: FERROUS SULFATE
     Dosage: 325 MG, QD
     Route: 048
     Dates: start: 20221207
  14. FISH OIL [Concomitant]
     Active Substance: FISH OIL
     Dosage: 1000 MG, TID
     Route: 048
     Dates: start: 20210616

REACTIONS (12)
  - Seizure [Recovered/Resolved]
  - Deep vein thrombosis [Unknown]
  - Chills [Recovered/Resolved]
  - Chills [Unknown]
  - Chills [Unknown]
  - Back pain [Unknown]
  - Fatigue [Unknown]
  - Blood pressure increased [Recovered/Resolved]
  - Arthralgia [Unknown]
  - Blood pressure increased [Recovered/Resolved]
  - Fatigue [Unknown]
  - Off label use [Unknown]

NARRATIVE: CASE EVENT DATE: 20230131
